FAERS Safety Report 9462203 (Version 1)
Quarter: 2013Q3

REPORT INFORMATION
  Report Type: Spontaneous
  Country: US (occurrence: None)
  Receive Date: 20130815
  Receipt Date: 20130815
  Transmission Date: 20140515
  Serious: Yes (Hospitalization)
  Sender: FDA-Public Use
  Company Number: None

PATIENT
  Age: 89 Year
  Sex: Male
  Weight: 82 kg

DRUGS (1)
  1. WARFARIN [Suspect]
     Indication: ATRIAL FIBRILLATION
     Dosage: 5 MG MTTHF PO
     Route: 048

REACTIONS (6)
  - Urinary tract infection [None]
  - Renal failure acute [None]
  - International normalised ratio increased [None]
  - Extra dose administered [None]
  - Haemoglobin decreased [None]
  - Occult blood positive [None]
